FAERS Safety Report 9786396 (Version 3)
Quarter: 2014Q1

REPORT INFORMATION
  Report Type: Report from Study
  Country: DO (occurrence: DO)
  Receive Date: 20131227
  Receipt Date: 20140320
  Transmission Date: 20141002
  Serious: Yes (Hospitalization)
  Sender: FDA-Public Use
  Company Number: DO-US-EMD SERONO, INC.-7259125

PATIENT
  Age: 14 Year
  Sex: Male

DRUGS (3)
  1. SAIZEN [Suspect]
     Indication: GROWTH HORMONE DEFICIENCY
     Dates: start: 20131118
  2. SAIZEN [Suspect]
     Dosage: VERY LOW DOSE (LESS THAN 0.76MG)
     Dates: start: 20140117
  3. SAIZEN [Suspect]
     Dosage: INCREASED DOSE (UNSPECIFIED)
     Dates: start: 201403

REACTIONS (1)
  - Pancreatitis [Recovering/Resolving]
